FAERS Safety Report 9815564 (Version 2)
Quarter: 2016Q1

REPORT INFORMATION
  Report Type: Report from Study
  Country: US (occurrence: US)
  Receive Date: 20140114
  Receipt Date: 20160317
  Transmission Date: 20160526
  Serious: Yes (Hospitalization, Other)
  Sender: FDA-Public Use
  Company Number: US-JNJFOC-20140102987

PATIENT
  Age: 65 Year
  Sex: Female
  Weight: 63.5 kg

DRUGS (3)
  1. STELARA [Suspect]
     Active Substance: USTEKINUMAB
     Indication: PSORIASIS
     Route: 058
     Dates: start: 2011, end: 201302
  2. DILTIAZEM [Concomitant]
     Active Substance: DILTIAZEM
     Indication: CARDIAC DISORDER
     Route: 048
  3. DALIRESP [Concomitant]
     Active Substance: ROFLUMILAST
     Indication: PROPHYLAXIS
     Route: 048

REACTIONS (29)
  - Wrist fracture [Recovering/Resolving]
  - Atrial fibrillation [Unknown]
  - Loss of consciousness [Recovered/Resolved]
  - Fall [Recovered/Resolved]
  - Psoriasis [Not Recovered/Not Resolved]
  - Dyspnoea [Unknown]
  - Intracranial aneurysm [Not Recovered/Not Resolved]
  - Nephrolithiasis [Recovered/Resolved]
  - Chronic obstructive pulmonary disease [Not Recovered/Not Resolved]
  - Oxygen saturation decreased [Unknown]
  - Renal disorder [Unknown]
  - Heart rate irregular [Unknown]
  - Swelling [Unknown]
  - Procedural pain [Unknown]
  - Abnormal loss of weight [Unknown]
  - Deafness unilateral [Not Recovered/Not Resolved]
  - Hypertension [Unknown]
  - Gastrointestinal polyp haemorrhage [Recovered/Resolved]
  - Hospitalisation [Recovered/Resolved]
  - Morbid thoughts [Unknown]
  - Hand fracture [Recovering/Resolving]
  - Vomiting [Unknown]
  - Vision blurred [Unknown]
  - Urinary tract infection [Unknown]
  - Nausea [Unknown]
  - Axillary mass [Unknown]
  - Pain [Not Recovered/Not Resolved]
  - Basal cell carcinoma [Recovered/Resolved]
  - Hypotension [Unknown]

NARRATIVE: CASE EVENT DATE: 201208
